FAERS Safety Report 4892784-3 (Version None)
Quarter: 2005Q4

REPORT INFORMATION
  Report Type: 
  Country: None (occurrence: None)
  Receive Date: 20051220
  Receipt Date: 20051107
  Transmission Date: 20060501
  Serious: Yes (Other)
  Sender: FDA-Public Use
  Company Number: 424123

PATIENT
  Sex: Female

DRUGS (3)
  1. BONIVA [Suspect]
     Dosage: 1 PER MONTH
  2. CALCIUM (CALCIUM) [Concomitant]
  3. VITAMIN D (VITAMIN D NOS) [Concomitant]

REACTIONS (2)
  - ARTHRALGIA [None]
  - MYALGIA [None]
